FAERS Safety Report 6683534-9 (Version None)
Quarter: 2010Q2

REPORT INFORMATION
  Report Type: 
  Country: None (occurrence: None)
  Receive Date: 20100413
  Receipt Date: 20100329
  Transmission Date: 20101027
  Serious: Yes (Other)
  Sender: FDA-Public Use
  Company Number: CIP10000674

PATIENT
  Age: 55 Year
  Sex: Female

DRUGS (2)
  1. RISEDRONATE SODIUM [Suspect]
     Dosage: 35  MG, FREQUENCY, ORAL
     Route: 048
     Dates: start: 19950101
  2. FOSAMAX [Suspect]
     Dosage: ORAL
     Route: 048
     Dates: start: 19950101

REACTIONS (5)
  - ANKLE FRACTURE [None]
  - BONE DISORDER [None]
  - FEMUR FRACTURE [None]
  - FOOT FRACTURE [None]
  - STRESS FRACTURE [None]
